FAERS Safety Report 5694978-6 (Version None)
Quarter: 2008Q2

REPORT INFORMATION
  Report Type: 
  Country: None (occurrence: None)
  Receive Date: 20080404
  Receipt Date: 20080324
  Transmission Date: 20081010
  Serious: Yes (Hospitalization, Other)
  Sender: FDA-Public Use
  Company Number: US-JNJFOC-20080306271

PATIENT
  Sex: Female
  Weight: 109.32 kg

DRUGS (14)
  1. DURAGESIC-100 [Suspect]
     Dosage: CONSISTING OF 2 X 25 UG/HR PATCHES
  2. DURAGESIC-100 [Suspect]
  3. DURAGESIC-100 [Suspect]
     Indication: PAIN
     Dosage: STARTED SEP-2007 FULL STOP DATE NOT KNOWN
  4. FENTANYL TRANSDERMAL SYSTEM [Suspect]
     Indication: PAIN
     Route: 062
  5. SEASONALE [Concomitant]
     Indication: CONTRACEPTION
     Route: 048
  6. PROZAC [Concomitant]
     Indication: DEPRESSION
     Route: 048
  7. AMBIEN CR [Concomitant]
     Indication: SLEEP DISORDER
     Route: 048
  8. LEVOTHYROXINE SODIUM [Concomitant]
     Indication: THYROID DISORDER
     Route: 048
  9. SINGULAIR [Concomitant]
     Indication: MULTIPLE ALLERGIES
     Route: 048
  10. ZYRTEC [Concomitant]
     Indication: MULTIPLE ALLERGIES
     Route: 048
  11. HYDROCHLOROTHIAZIDE [Concomitant]
     Indication: FLUID RETENTION
     Dosage: AS NEEDED
     Route: 054
  12. CALCIUM [Concomitant]
     Indication: NUTRITIONAL SUPPORT
     Route: 048
  13. COENZYME Q10 [Concomitant]
     Indication: NUTRITIONAL SUPPORT
     Route: 048
  14. FIBER [Concomitant]
     Indication: NUTRITIONAL SUPPORT
     Route: 048

REACTIONS (10)
  - AMNESIA [None]
  - ANXIETY [None]
  - APPLICATION SITE ERYTHEMA [None]
  - BALANCE DISORDER [None]
  - FEELING ABNORMAL [None]
  - GRAND MAL CONVULSION [None]
  - MUSCLE TWITCHING [None]
  - PAIN [None]
  - SLEEP DISORDER [None]
  - UNEVALUABLE EVENT [None]
